FAERS Safety Report 5299143-2 (Version None)
Quarter: 2007Q2

REPORT INFORMATION
  Report Type: 
  Country: None (occurrence: None)
  Receive Date: 20070411
  Receipt Date: 20070411
  Transmission Date: 20071010
  Serious: Yes (Hospitalization)
  Sender: FDA-Public Use
  Company Number: None

PATIENT
  Age: 83 Year
  Sex: Male
  Weight: 80.2 kg

DRUGS (1)
  1. RITUXIMAB [Suspect]
     Indication: DIFFUSE LARGE B-CELL LYMPHOMA
     Dosage: 700MG, 700MG IV, INTRAVEN
     Route: 042
     Dates: start: 20070104, end: 20070104

REACTIONS (1)
  - HYPERSENSITIVITY [None]
